FAERS Safety Report 10652122 (Version 1)
Quarter: 2014Q4

REPORT INFORMATION
  Report Type: Spontaneous
  Country: GB (occurrence: None)
  Receive Date: 20141212
  Receipt Date: 20141212
  Transmission Date: 20150529
  Serious: Yes (Disabling)
  Sender: FDA-Public Use
  Company Number: None

PATIENT
  Age: 34 Year
  Sex: Female
  Weight: 80 kg

DRUGS (3)
  1. MIRTAZAPINE 30MG [Suspect]
     Active Substance: MIRTAZAPINE
     Indication: POSTPARTUM DISORDER
     Dosage: 1 TABLET DAILY, ONCE DAILY, TAKEN BY MOUTH
     Route: 048
  2. MIRTAZAPINE 30MG [Suspect]
     Active Substance: MIRTAZAPINE
     Indication: DEPRESSION
     Dosage: 1 TABLET DAILY, ONCE DAILY, TAKEN BY MOUTH
     Route: 048
  3. MIRTAZAPINE 30MG [Suspect]
     Active Substance: MIRTAZAPINE
     Indication: ANXIETY
     Dosage: 1 TABLET DAILY, ONCE DAILY, TAKEN BY MOUTH
     Route: 048

REACTIONS (18)
  - Restless legs syndrome [None]
  - Drug withdrawal syndrome [None]
  - Paraesthesia [None]
  - Diarrhoea [None]
  - Anxiety [None]
  - Euphoric mood [None]
  - Tremor [None]
  - Panic reaction [None]
  - Tearfulness [None]
  - Insomnia [None]
  - Arthralgia [None]
  - Pain [None]
  - Nausea [None]
  - Feeling abnormal [None]
  - Irritability [None]
  - Gait disturbance [None]
  - Negative thoughts [None]
  - Memory impairment [None]
